FAERS Safety Report 16192229 (Version 1)
Quarter: 2019Q2

REPORT INFORMATION
  Report Type: Spontaneous
  Country: FR (occurrence: FR)
  Receive Date: 20190412
  Receipt Date: 20190412
  Transmission Date: 20190711
  Serious: Yes (Hospitalization, Other)
  Sender: FDA-Public Use
  Company Number: FR-BRISTOL-MYERS SQUIBB COMPANY-BMS-2019-033804

PATIENT
  Age: 69 Year
  Sex: Female
  Weight: 54.6 kg

DRUGS (1)
  1. OPDIVO [Suspect]
     Active Substance: NIVOLUMAB
     Indication: RENAL CANCER METASTATIC
     Dosage: 240 MILLIGRAM, Q2WK
     Route: 041
     Dates: start: 20181212, end: 20181228

REACTIONS (4)
  - Chest pain [Recovered/Resolved]
  - Cholestasis [Recovered/Resolved]
  - Dyspnoea [Recovered/Resolved]
  - Myocarditis [Recovered/Resolved]

NARRATIVE: CASE EVENT DATE: 20181213
